FAERS Safety Report 9776731 (Version 1)
Quarter: 2013Q4

REPORT INFORMATION
  Report Type: Spontaneous
  Country: JP (occurrence: JP)
  Receive Date: 20131220
  Receipt Date: 20131220
  Transmission Date: 20140711
  Serious: Yes (Other)
  Sender: FDA-Public Use
  Company Number: PHHY2013JP145754

PATIENT
  Age: 13 Year
  Sex: Female

DRUGS (7)
  1. DICLOFENAC [Suspect]
     Indication: PYREXIA
  2. DICLOFENAC [Suspect]
     Indication: HEADACHE
  3. DICLOFENAC [Suspect]
     Indication: NAUSEA
  4. LOXOPROFEN [Suspect]
     Indication: PYREXIA
  5. LOXOPROFEN [Suspect]
     Indication: HEADACHE
  6. LOXOPROFEN [Suspect]
     Indication: NAUSEA
  7. URSODEOXYCHOLIC ACID [Suspect]

REACTIONS (5)
  - Vanishing bile duct syndrome [Unknown]
  - Jaundice [Unknown]
  - Aspartate aminotransferase increased [Unknown]
  - Alanine aminotransferase increased [Unknown]
  - Drug ineffective [Unknown]
